FAERS Safety Report 9607619 (Version 3)
Quarter: 2013Q4

REPORT INFORMATION
  Report Type: Spontaneous
  Country: GB (occurrence: None)
  Receive Date: 20131004
  Receipt Date: 20131016
  Transmission Date: 20140711
  Serious: Yes (Life-Threatening)
  Sender: FDA-Public Use
  Company Number: AUR-APL-2013-08128

PATIENT
  Age: 86 Year
  Sex: Female
  Weight: 63.5 kg

DRUGS (13)
  1. RAMIPRIL [Suspect]
     Indication: HYPERTENSION
     Dosage: 5 MG (2.5 MG, 2 IN 1 D), ORAL
     Route: 048
     Dates: start: 20130905, end: 20130912
  2. ALOPURINOL [Concomitant]
  3. AMLODIPINE (AMLODIPINE) [Concomitant]
  4. ASPIRIN (ACETYLSALICYLIC ACID) [Concomitant]
  5. BISOPROLOL (BISOPROLOL) [Concomitant]
  6. DIPYRIDAMOLE (DIPYRIDAMOLE) [Concomitant]
  7. DOXAZOSIN (DOXAZOSIN) [Concomitant]
  8. FUROSEMIDE (FUROSEMIDE) [Concomitant]
  9. LANSOPRAZOLE (LANSOPRAZOLE) [Concomitant]
  10. MOXONIDINE (MOXONIDINE) [Concomitant]
  11. PRAVASTATIN (PRAVASTATIN) [Concomitant]
  12. SODIUM BICARBONATE (SODIUM BICARBONATE) [Concomitant]
  13. TRAMADOL (TRAMADOL) [Concomitant]

REACTIONS (6)
  - Lip swelling [None]
  - Swollen tongue [None]
  - Angioedema [None]
  - Dyspnoea [None]
  - Wheezing [None]
  - Hypersensitivity [None]
